FAERS Safety Report 11184421 (Version 1)
Quarter: 2015Q2

REPORT INFORMATION
  Report Type: Report from Study
  Country: US (occurrence: US)
  Receive Date: 20150612
  Receipt Date: 20150612
  Transmission Date: 20150821
  Serious: Yes (Other)
  Sender: FDA-Public Use
  Company Number: US-SA-2015SA080327

PATIENT
  Sex: Male

DRUGS (5)
  1. ALEMTUZUMAB [Suspect]
     Active Substance: ALEMTUZUMAB
     Indication: MYCOSIS FUNGOIDES
     Dosage: 6 WEEKLY
     Route: 058
  2. BEXAROTENE [Concomitant]
     Active Substance: BEXAROTENE
  3. BEXAROTENE [Concomitant]
     Active Substance: BEXAROTENE
  4. ALEMTUZUMAB [Suspect]
     Active Substance: ALEMTUZUMAB
     Indication: MYCOSIS FUNGOIDES
     Dosage: 3 MG, 10 MG, 30 MG
     Route: 042
  5. ALEMTUZUMAB [Suspect]
     Active Substance: ALEMTUZUMAB
     Indication: MYCOSIS FUNGOIDES
     Route: 058

REACTIONS (4)
  - Fusarium infection [Recovered/Resolved]
  - Herpes zoster [Unknown]
  - White blood cell count decreased [Unknown]
  - Off label use [Unknown]
